FAERS Safety Report 9999938 (Version 2)
Quarter: 2014Q1

REPORT INFORMATION
  Report Type: Spontaneous
  Country: US (occurrence: US)
  Receive Date: 20140312
  Receipt Date: 20140312
  Transmission Date: 20141002
  Serious: No
  Sender: FDA-Public Use
  Company Number: US-GILEAD-2012-0058001

PATIENT
  Sex: Female

DRUGS (1)
  1. LETAIRIS [Suspect]
     Indication: PRODUCT USED FOR UNKNOWN INDICATION
     Dosage: 5 MG, UNK
     Route: 048
     Dates: start: 20120428, end: 20120615

REACTIONS (5)
  - Chest discomfort [Unknown]
  - Feeling abnormal [Unknown]
  - Unevaluable event [Unknown]
  - Dyspnoea [Unknown]
  - Sinus disorder [Unknown]
